FAERS Safety Report 5443210-7 (Version None)
Quarter: 2007Q3

REPORT INFORMATION
  Report Type: 
  Country: None (occurrence: None)
  Receive Date: 20070905
  Receipt Date: 20070828
  Transmission Date: 20080115
  Serious: Yes (Other)
  Sender: FDA-Public Use
  Company Number: NL-AVENTIS-200717854GDDC

PATIENT
  Age: 64 Year
  Sex: Female
  Weight: 62 kg

DRUGS (3)
  1. TAXOTERE [Suspect]
     Route: 041
  2. EPIRUBICIN [Suspect]
     Route: 042
  3. TAMOXIFEN CITRATE [Suspect]
     Route: 048

REACTIONS (1)
  - CONTRALATERAL BREAST CANCER [None]
